FAERS Safety Report 19888890 (Version 1)
Quarter: 2021Q3

REPORT INFORMATION
  Report Type: Spontaneous
  Country: US (occurrence: US)
  Receive Date: 20210928
  Receipt Date: 20210928
  Transmission Date: 20211014
  Serious: No
  Sender: FDA-Public Use
  Company Number: US-KVK-TECH, INC-20210300026

PATIENT

DRUGS (1)
  1. OXYCODONE HYDROCHLORIDE TABLETS, USP [Suspect]
     Active Substance: OXYCODONE HYDROCHLORIDE
     Indication: PRODUCT USED FOR UNKNOWN INDICATION
     Dosage: 10 MILLIGRAM

REACTIONS (10)
  - Headache [Unknown]
  - Drug ineffective [Unknown]
  - Toxicity to various agents [Unknown]
  - Palpitations [Unknown]
  - Agitation [Unknown]
  - Malaise [Unknown]
  - Dyspnoea [Unknown]
  - Nausea [Unknown]
  - Dysphoria [Unknown]
  - Tachycardia [Unknown]
